FAERS Safety Report 13256711 (Version 1)
Quarter: 2017Q1

REPORT INFORMATION
  Report Type: Spontaneous
  Country: US (occurrence: US)
  Receive Date: 20170220
  Receipt Date: 20170220
  Transmission Date: 20170428
  Serious: Yes (Disabling)
  Sender: FDA-Public Use
  Company Number: None

PATIENT
  Age: 46 Year
  Sex: Male
  Weight: 83.25 kg

DRUGS (5)
  1. ONE-A-DAY MULTIVITAMIN [Concomitant]
  2. FUROSEMIDE. [Concomitant]
     Active Substance: FUROSEMIDE
  3. IMODIUM [Concomitant]
     Active Substance: LOPERAMIDE HYDROCHLORIDE
  4. AFINITOR [Suspect]
     Active Substance: EVEROLIMUS
     Indication: NEOPLASM MALIGNANT
     Dosage: ?          QUANTITY:1 TABLET(S);?
     Route: 048
     Dates: start: 20161201, end: 20170128
  5. CLARITIN-D 12 HOUR [Concomitant]
     Active Substance: LORATADINE\PSEUDOEPHEDRINE SULFATE

REACTIONS (12)
  - Joint range of motion decreased [None]
  - Aphthous ulcer [None]
  - Peripheral swelling [None]
  - Rash [None]
  - Fatigue [None]
  - Gait disturbance [None]
  - Dyspnoea [None]
  - Rash generalised [None]
  - Weight increased [None]
  - Arthralgia [None]
  - Dizziness [None]
  - Fluid retention [None]

NARRATIVE: CASE EVENT DATE: 20170109
